FAERS Safety Report 12610952 (Version 1)
Quarter: 2016Q3

REPORT INFORMATION
  Report Type: Spontaneous
  Country: CA (occurrence: CA)
  Receive Date: 20160801
  Receipt Date: 20160801
  Transmission Date: 20161109
  Serious: Yes (Hospitalization, Other)
  Sender: FDA-Public Use
  Company Number: CA-BAYER-2016-124361

PATIENT
  Age: 60 Year
  Sex: Male
  Weight: 90.72 kg

DRUGS (2)
  1. PARIET [Concomitant]
     Active Substance: RABEPRAZOLE SODIUM
     Indication: GASTROOESOPHAGEAL REFLUX DISEASE
     Dosage: 10 MG, UNK
     Dates: start: 200006
  2. AVELOX [Suspect]
     Active Substance: MOXIFLOXACIN HYDROCHLORIDE
     Indication: CHRONIC SINUSITIS
     Dosage: 400 MG, QD
     Route: 048
     Dates: start: 20100815, end: 20100820

REACTIONS (11)
  - Formication [None]
  - Stiff person syndrome [None]
  - Sensory loss [None]
  - Muscle spasms [None]
  - Tendon rupture [None]
  - Tendonitis [None]
  - Pain in extremity [None]
  - Arthritis [None]
  - Arthralgia [None]
  - Neuropathy peripheral [Not Recovered/Not Resolved]
  - Toxicity to various agents [None]

NARRATIVE: CASE EVENT DATE: 201008
